FAERS Safety Report 6840177-1 (Version None)
Quarter: 2010Q2

REPORT INFORMATION
  Report Type: 
  Country: None (occurrence: None)
  Receive Date: 20100629
  Receipt Date: 20100315
  Transmission Date: 20101027
  Serious: No
  Sender: FDA-Public Use
  Company Number: US-WYE-H14121810

PATIENT

DRUGS (3)
  1. PRISTIQ [Suspect]
  2. LIDOCAINE [Suspect]
     Indication: DENTAL CARE
  3. NITROUS OXIDE W/ OXYGEN [Suspect]
     Indication: ANAESTHESIA
     Dosage: INHALATION
     Route: 055

REACTIONS (1)
  - CONVULSION [None]
